FAERS Safety Report 5153526-X (Version None)
Quarter: 2006Q4

REPORT INFORMATION
  Report Type: 
  Country: None (occurrence: None)
  Receive Date: 20061114
  Receipt Date: 20061102
  Transmission Date: 20070319
  Serious: Yes (Other)
  Sender: FDA-Public Use
  Company Number: 2006-08-0512

PATIENT
  Age: 70 Year
  Sex: Female
  Weight: 61.2356 kg

DRUGS (2)
  1. NASONEX [Suspect]
     Indication: HYPERSENSITIVITY
     Dosage: 0 DF; NAS
     Route: 045
     Dates: start: 20060701
  2. THYROXIN (CON) [Concomitant]

REACTIONS (7)
  - ABASIA [None]
  - BLINDNESS UNILATERAL [None]
  - DIPLOPIA [None]
  - DIZZINESS [None]
  - HEADACHE [None]
  - NAUSEA [None]
  - VISUAL ACUITY REDUCED [None]
